FAERS Safety Report 14156054 (Version 1)
Quarter: 2017Q4

REPORT INFORMATION
  Report Type: Spontaneous
  Country: US (occurrence: US)
  Receive Date: 20171103
  Receipt Date: 20171103
  Transmission Date: 20180321
  Serious: Yes (Hospitalization)
  Sender: FDA-Public Use
  Company Number: US-ASTRAZENECA-2017SF11229

PATIENT
  Age: 31204 Day
  Sex: Male

DRUGS (5)
  1. METOPROLOL TARTRATE. [Suspect]
     Active Substance: METOPROLOL TARTRATE
     Indication: BLOOD PRESSURE ABNORMAL
     Route: 048
  2. TERAZOSIN [Concomitant]
     Active Substance: TERAZOSIN\TERAZOSIN HYDROCHLORIDE
     Indication: PROSTATOMEGALY
     Route: 048
     Dates: start: 2014
  3. DALIRESP [Suspect]
     Active Substance: ROFLUMILAST
     Indication: CHRONIC OBSTRUCTIVE PULMONARY DISEASE
     Route: 048
     Dates: start: 201710
  4. OXYGEN. [Concomitant]
     Active Substance: OXYGEN
     Indication: CHRONIC OBSTRUCTIVE PULMONARY DISEASE
     Dosage: CONTINUOUSLY
     Route: 055
     Dates: start: 201708
  5. PLAVIX [Concomitant]
     Active Substance: CLOPIDOGREL BISULFATE
     Indication: THROMBOSIS
     Route: 048
     Dates: start: 201702

REACTIONS (2)
  - Pneumonia [Unknown]
  - Heart rate decreased [Unknown]

NARRATIVE: CASE EVENT DATE: 20171029
